FAERS Safety Report 4297691-5 (Version None)
Quarter: 2004Q1

REPORT INFORMATION
  Report Type: 
  Country: None (occurrence: None)
  Receive Date: 20040126
  Receipt Date: 20030918
  Transmission Date: 20041129
  Serious: No
  Sender: FDA-Public Use
  Company Number: USA030947667

PATIENT
  Age: 44 Year
  Sex: Female

DRUGS (5)
  1. STRATTERA [Suspect]
     Dosage: 60 MG/DAY
     Dates: start: 20030801
  2. OMEPRAZOLE [Concomitant]
  3. ALBUTEROL [Concomitant]
  4. TIAZAC [Concomitant]
  5. FLONAZE (FLUTICASONE PROPIONATE) [Concomitant]

REACTIONS (1)
  - HOARSENESS [None]
